FAERS Safety Report 4355477-7 (Version None)
Quarter: 2004Q2

REPORT INFORMATION
  Report Type: 
  Country: None (occurrence: None)
  Receive Date: 20040503
  Receipt Date: 20040102
  Transmission Date: 20050107
  Serious: Yes (Disabling, Other)
  Sender: FDA-Public Use
  Company Number: 200410006BWH

PATIENT
  Age: 31 Year
  Sex: Female
  Weight: 63.5036 kg

DRUGS (2)
  1. CIPRO XR [Suspect]
     Indication: URINARY TRACT INFECTION
     Dosage: 1000 MG, TOTAL DAILY, ORAL; 500 MG, TOTAL DAILY, ORAL
     Route: 048
     Dates: start: 20031208, end: 20031211
  2. ZYRTEC [Concomitant]

REACTIONS (3)
  - CONTUSION [None]
  - PAIN IN EXTREMITY [None]
  - TENDON RUPTURE [None]
